FAERS Safety Report 7618012-3 (Version None)
Quarter: 2011Q3

REPORT INFORMATION
  Report Type: 
  Country: None (occurrence: None)
  Receive Date: 20110718
  Receipt Date: 20110713
  Transmission Date: 20111222
  Serious: Yes (Death, Hospitalization)
  Sender: FDA-Public Use
  Company Number: PHHY2011DE63388

PATIENT
  Sex: Male
  Weight: 117 kg

DRUGS (10)
  1. PANTOPRAZOLE SODIUM [Suspect]
     Indication: ULCER
     Dosage: 20 MG, QD
     Route: 048
     Dates: start: 20100810
  2. NOVAMINSULFON [Suspect]
     Indication: ARTHRALGIA
     Dosage: 50 MG, QD
     Route: 048
     Dates: start: 20100823
  3. NO TREATMENT RECEIVED [Suspect]
     Dosage: UNK UKN, NO TREATMENT
  4. OXAZEPAM [Suspect]
     Indication: SEDATION
     Dosage: 10 MG, QD
     Route: 048
     Dates: start: 20100810
  5. ACTRAPID [Suspect]
     Indication: DIABETES MELLITUS
     Dosage: 30 IU, QD
     Route: 058
     Dates: start: 20071031
  6. DICLOFENAC [Suspect]
     Indication: ARTHRALGIA
     Dosage: 150 MG, QD
     Route: 048
     Dates: start: 20100506
  7. TORSEMIDE [Suspect]
     Indication: HYPERTENSION
     Dosage: 10 MG, QD
     Route: 048
     Dates: start: 20071031
  8. TAMSULOSIN HCL [Suspect]
     Indication: BENIGN PROSTATIC HYPERPLASIA
     Dosage: 0.4 MG, QD
     Route: 048
     Dates: start: 20090126
  9. METFORMIN HCL [Suspect]
     Indication: DIABETES MELLITUS
     Dosage: 1700 MG, QD
     Route: 048
     Dates: start: 20071031
  10. AMLODIPINE [Suspect]
     Indication: HYPERTENSION
     Dosage: 10 MG, QD
     Route: 048
     Dates: start: 20081125

REACTIONS (2)
  - SUDDEN CARDIAC DEATH [None]
  - OSTEOARTHRITIS [None]
